FAERS Safety Report 8133821-2 (Version None)
Quarter: 2012Q1

REPORT INFORMATION
  Report Type: 
  Country: None (occurrence: None)
  Receive Date: 20120213
  Receipt Date: 20120213
  Transmission Date: 20120608
  Serious: Yes (Other)
  Sender: FDA-Public Use
  Company Number: None

PATIENT

DRUGS (1)
  1. TESTIM [Suspect]
     Indication: HYPOGONADISM
     Dosage: 1 TUBE
     Route: 061

REACTIONS (1)
  - DRUG INEFFECTIVE [None]
